FAERS Safety Report 19389783 (Version 2)
Quarter: 2021Q2

REPORT INFORMATION
  Report Type: Spontaneous
  Country: AT (occurrence: AT)
  Receive Date: 20210608
  Receipt Date: 20210611
  Transmission Date: 20210717
  Serious: Yes (Death, Life-Threatening, Hospitalization, Other)
  Sender: FDA-Public Use
  Company Number: AT-AMGEN-AUTSP2021084522

PATIENT
  Age: 77 Year
  Sex: Male
  Weight: 76 kg

DRUGS (2)
  1. LEUPROLIDE ACETATE. [Concomitant]
     Active Substance: LEUPROLIDE ACETATE
     Dosage: UNK UNK, Q3MO
     Route: 030
  2. XGEVA [Suspect]
     Active Substance: DENOSUMAB
     Indication: PROSTATE CANCER STAGE III
     Dosage: UNK UNK, QMO
     Route: 058

REACTIONS (8)
  - Postrenal failure [Unknown]
  - Death [Fatal]
  - Blood pressure decreased [Unknown]
  - Atrial fibrillation [Unknown]
  - Vipoma [Unknown]
  - Gastrooesophageal reflux disease [Unknown]
  - Prostate cancer metastatic [Unknown]
  - Anaemia [Unknown]
